FAERS Safety Report 21058228 (Version 1)
Quarter: 2022Q3

REPORT INFORMATION
  Report Type: Spontaneous
  Country: US (occurrence: US)
  Receive Date: 20220708
  Receipt Date: 20220708
  Transmission Date: 20221026
  Serious: Yes (Other)
  Sender: FDA-Public Use
  Company Number: US-BioHaven Pharmaceuticals-2022BHV001750

PATIENT

DRUGS (6)
  1. NURTEC ODT [Suspect]
     Active Substance: RIMEGEPANT SULFATE
     Indication: Headache
     Route: 065
  2. AJOVY [Concomitant]
     Active Substance: FREMANEZUMAB-VFRM
     Indication: Headache
  3. SUMATRIPTAN [Concomitant]
     Active Substance: SUMATRIPTAN
     Indication: Headache
     Dosage: PATIENT^S GO-TO PRIOR TO HAVING A STROKE
     Route: 065
  4. LASMIDITAN/REYVOW [Concomitant]
     Indication: Product used for unknown indication
     Dosage: POST-STROKE, PATIENT WAS CLEARED TO TRY REYVOW (LASMIDITAN) AND HATED IT
     Route: 065
  5. UBRELVY [Concomitant]
     Active Substance: UBROGEPANT
     Indication: Headache
     Route: 065
  6. TOPAMAX [Concomitant]
     Active Substance: TOPIRAMATE
     Indication: Pain
     Route: 065

REACTIONS (4)
  - Ischaemic stroke [Recovered/Resolved with Sequelae]
  - Brain injury [Not Recovered/Not Resolved]
  - Aura [Recovered/Resolved]
  - Drug ineffective [Unknown]
